FAERS Safety Report 5927053-3 (Version None)
Quarter: 2008Q4

REPORT INFORMATION
  Report Type: 
  Country: None (occurrence: None)
  Receive Date: 20081022
  Receipt Date: 20081015
  Transmission Date: 20090506
  Serious: Yes (Hospitalization)
  Sender: FDA-Public Use
  Company Number: PHEH2008US08957

PATIENT
  Sex: Female

DRUGS (12)
  1. ZOLOFT [Concomitant]
     Dosage: 50 MG, QD
     Route: 048
  2. RECLAST [Suspect]
     Dosage: 5 MG, YEARLY
     Dates: start: 20081002, end: 20081002
  3. CELEBREX [Concomitant]
     Dosage: 200 MG, UNK
     Route: 048
  4. ACTOS [Concomitant]
     Dosage: 1700 UNK, QD
     Route: 048
  5. METFORMIN HYDROCHLORIDE [Concomitant]
     Dosage: 30 UNK, QD
     Route: 048
  6. LANTUS [Concomitant]
     Dosage: 25 U, UNK
     Route: 030
  7. ISOSORBIDE MONONITRATE [Concomitant]
     Dosage: 20 MG, QD
  8. K-DUR [Concomitant]
     Dosage: 10 UNK, QD
     Route: 048
  9. CYMBALTA [Concomitant]
     Dosage: 60 MG, QD
     Route: 048
  10. COREG [Concomitant]
     Dosage: 3.125 UNK, BID
     Route: 048
  11. SYNTHROID [Concomitant]
     Dosage: 50 UNK, QD
     Route: 048
  12. REQUIP [Concomitant]
     Dosage: 0.25 UNK, QD
     Route: 048

REACTIONS (9)
  - ARTHRALGIA [None]
  - ASTHENIA [None]
  - BLOOD PHOSPHORUS DECREASED [None]
  - FATIGUE [None]
  - GAIT DISTURBANCE [None]
  - MALAISE [None]
  - MYALGIA [None]
  - PYREXIA [None]
  - WHITE BLOOD CELLS URINE POSITIVE [None]
